FAERS Safety Report 9932160 (Version 2)
Quarter: 2014Q1

REPORT INFORMATION
  Report Type: Spontaneous
  Country: US (occurrence: US)
  Receive Date: 20140228
  Receipt Date: 20140228
  Transmission Date: 20141002
  Serious: No
  Sender: FDA-Public Use
  Company Number: US-ABBVIE-13P-163-1070678-00

PATIENT
  Sex: Male
  Weight: 70.37 kg

DRUGS (7)
  1. ANDROGEL [Suspect]
     Indication: BLOOD TESTOSTERONE DECREASED
     Dosage: PACKETS
     Dates: start: 1993, end: 2012
  2. VIAGRA [Suspect]
     Indication: PRODUCT USED FOR UNKNOWN INDICATION
  3. ASPIRIN [Concomitant]
     Indication: PRODUCT USED FOR UNKNOWN INDICATION
  4. FISH OIL [Concomitant]
     Indication: SUPPLEMENTATION THERAPY
  5. COD LIVER OIL [Concomitant]
     Indication: SUPPLEMENTATION THERAPY
  6. MULTIVITAMIN [Concomitant]
     Indication: SUPPLEMENTATION THERAPY
  7. CO Q 10 [Concomitant]
     Indication: SUPPLEMENTATION THERAPY

REACTIONS (6)
  - Anger [Recovering/Resolving]
  - Irritability [Recovering/Resolving]
  - Erectile dysfunction [Not Recovered/Not Resolved]
  - Breast enlargement [Recovered/Resolved]
  - Nasal congestion [Unknown]
  - Flushing [Unknown]
